FAERS Safety Report 14285015 (Version 2)
Quarter: 2018Q1

REPORT INFORMATION
  Report Type: Spontaneous
  Country: US (occurrence: US)
  Receive Date: 20171214
  Receipt Date: 20180212
  Transmission Date: 20180509
  Serious: Yes (Other)
  Sender: FDA-Public Use
  Company Number: US-TEVA-2017-US-831569

PATIENT
  Age: 53 Year
  Sex: Female

DRUGS (4)
  1. ACTIQ [Suspect]
     Active Substance: FENTANYL CITRATE
     Indication: ABDOMINAL PAIN UPPER
     Dosage: UP TO 400MCG 8 TIMES PER DAY AS NEEDED
     Route: 065
     Dates: start: 2006
  2. FENTANYL TRANSDERMAL SYSTEM [Concomitant]
     Active Substance: FENTANYL
  3. ACTIQ [Suspect]
     Active Substance: FENTANYL CITRATE
     Indication: BREAKTHROUGH PAIN
  4. ACTIQ [Suspect]
     Active Substance: FENTANYL CITRATE
     Indication: PAIN

REACTIONS (5)
  - Drug ineffective for unapproved indication [Unknown]
  - Off label use [Unknown]
  - Dental caries [Not Recovered/Not Resolved]
  - Drug intolerance [Unknown]
  - Tooth loss [Not Recovered/Not Resolved]

NARRATIVE: CASE EVENT DATE: 201710
